FAERS Safety Report 5160554-7 (Version None)
Quarter: 2006Q4

REPORT INFORMATION
  Report Type: 
  Country: None (occurrence: None)
  Receive Date: 20061121
  Receipt Date: 20061108
  Transmission Date: 20070319
  Serious: Yes (Death, Other)
  Sender: FDA-Public Use
  Company Number: 2005109080

PATIENT
  Age: 79 Year
  Sex: Male

DRUGS (1)
  1. IRINOTECAN HCL [Suspect]
     Indication: GASTRIC CANCER

REACTIONS (4)
  - ADRENAL INSUFFICIENCY [None]
  - AUTONOMIC NEUROPATHY [None]
  - GASTROINTESTINAL HAEMORRHAGE [None]
  - ORTHOSTATIC HYPOTENSION [None]
